FAERS Safety Report 15439118 (Version 2)
Quarter: 2018Q4

REPORT INFORMATION
  Report Type: Spontaneous
  Country: US (occurrence: US)
  Receive Date: 20180928
  Receipt Date: 20181203
  Transmission Date: 20190204
  Serious: No
  Sender: FDA-Public Use
  Company Number: US-PFIZER INC-2018387104

PATIENT
  Age: 55 Year
  Sex: Female
  Weight: 51.26 kg

DRUGS (2)
  1. EMBEDA [Suspect]
     Active Substance: MORPHINE SULFATE\NALTREXONE HYDROCHLORIDE
     Indication: NECK PAIN
  2. EMBEDA [Suspect]
     Active Substance: MORPHINE SULFATE\NALTREXONE HYDROCHLORIDE
     Indication: SCIATICA
     Dosage: 30 MG, 2X/DAY
     Route: 048

REACTIONS (2)
  - Pruritus [Recovered/Resolved]
  - Scar [Unknown]
